FAERS Safety Report 14626739 (Version 1)
Quarter: 2018Q1

REPORT INFORMATION
  Report Type: Spontaneous
  Country: US (occurrence: US)
  Receive Date: 20180311
  Receipt Date: 20180311
  Transmission Date: 20180509
  Serious: Yes (Hospitalization)
  Sender: FDA-Public Use
  Company Number: None

PATIENT
  Age: 68 Year
  Sex: Male
  Weight: 55.34 kg

DRUGS (2)
  1. CLOPIDOGREL [Suspect]
     Active Substance: CLOPIDOGREL BISULFATE
     Indication: VASCULAR OPERATION
     Route: 048
     Dates: start: 20180221, end: 20180221
  2. ASPIRIN. [Suspect]
     Active Substance: ASPIRIN
     Indication: VASCULAR OPERATION
     Route: 048
     Dates: start: 20180221, end: 20180221

REACTIONS (4)
  - Fatigue [None]
  - Faeces discoloured [None]
  - Gastric haemorrhage [None]
  - Dizziness [None]

NARRATIVE: CASE EVENT DATE: 20180308
